FAERS Safety Report 7765444-9 (Version None)
Quarter: 2011Q3

REPORT INFORMATION
  Report Type: 
  Country: None (occurrence: None)
  Receive Date: 20110906
  Receipt Date: 20110509
  Transmission Date: 20111222
  Serious: No
  Sender: FDA-Public Use
  Company Number: 201104060

PATIENT
  Sex: Male

DRUGS (5)
  1. XIAFLEX [Suspect]
     Indication: DUPUYTREN'S CONTRACTURE
     Dosage: 0.58 MG, 1 IN 1 D, INTRALESIONAL
     Route: 026
     Dates: start: 20110301, end: 20110301
  2. AMBIEN [Concomitant]
  3. COQ10 (UBIDECARDENONE) [Concomitant]
  4. MULTIVITAMIN (ERGOCALCIFERON) [Concomitant]
  5. TESTOSTERONE GEL UNKNOWN(TESTOSTERONE) [Concomitant]

REACTIONS (1)
  - LACERATION [None]
